FAERS Safety Report 24767698 (Version 1)
Quarter: 2024Q4

REPORT INFORMATION
  Report Type: Report from Study
  Country: US (occurrence: US)
  Receive Date: 20241223
  Receipt Date: 20241223
  Transmission Date: 20250115
  Serious: Yes (Death)
  Sender: pharmaAND
  Company Number: US-Pharmaand-2024001316

PATIENT
  Sex: Male

DRUGS (1)
  1. RUBRACA [Suspect]
     Active Substance: RUCAPARIB CAMSYLATE
     Indication: Pancreatic carcinoma
     Dosage: 600 MG BID
     Route: 048

REACTIONS (3)
  - Death [Fatal]
  - Off label use [Recovered/Resolved]
  - Pancreatic carcinoma [Recovered/Resolved]
